FAERS Safety Report 15947500 (Version 1)
Quarter: 2019Q1

REPORT INFORMATION
  Report Type: Spontaneous
  Country: FR (occurrence: FR)
  Receive Date: 20190212
  Receipt Date: 20190212
  Transmission Date: 20190417
  Serious: Yes (Hospitalization)
  Sender: FDA-Public Use
  Company Number: FR-SA-2019SA033540

PATIENT
  Age: 72 Year
  Sex: Male

DRUGS (15)
  1. PANTOPRAZOLE [Concomitant]
     Active Substance: PANTOPRAZOLE
  2. TARDYFERON [Concomitant]
     Active Substance: FERROUS SULFATE
  3. LERCAN [Concomitant]
     Active Substance: LERCANIDIPINE
  4. NOVONORM [Concomitant]
     Active Substance: REPAGLINIDE
  5. EUPRESSYL [URAPIDIL HYDROCHLORIDE] [Concomitant]
     Active Substance: URAPIDIL HYDROCHLORIDE
  6. LASILIX [Suspect]
     Active Substance: FUROSEMIDE
     Indication: HYPERTENSION
     Dosage: 165 MG, QD,125MG + 40MG / DAY
     Route: 048
  7. APROVEL [Suspect]
     Active Substance: IRBESARTAN
     Dosage: UNK
     Route: 065
  8. SIMVASTATINE [Concomitant]
     Active Substance: SIMVASTATIN
  9. LANTUS [Concomitant]
     Active Substance: INSULIN GLARGINE
  10. UVEDOSE [Concomitant]
     Active Substance: CHOLECALCIFEROL
  11. LASILIX [Suspect]
     Active Substance: FUROSEMIDE
     Dosage: UNK
     Route: 065
  12. APROVEL [Suspect]
     Active Substance: IRBESARTAN
     Indication: HYPERTENSION
     Dosage: 2 DF QD
     Route: 048
  13. PREVISCAN [FLUINDIONE] [Concomitant]
     Active Substance: FLUINDIONE
  14. UROREC [Concomitant]
     Active Substance: SILODOSIN
  15. VENLAFAXINE [Concomitant]
     Active Substance: VENLAFAXINE HYDROCHLORIDE

REACTIONS (2)
  - Acute kidney injury [Recovered/Resolved with Sequelae]
  - Hyperkalaemia [Recovered/Resolved]

NARRATIVE: CASE EVENT DATE: 20160212
